FAERS Safety Report 11272422 (Version 4)
Quarter: 2016Q1

REPORT INFORMATION
  Report Type: Spontaneous
  Country: US (occurrence: US)
  Receive Date: 20150715
  Receipt Date: 20160219
  Transmission Date: 20160525
  Serious: Yes (Hospitalization, Other)
  Sender: FDA-Public Use
  Company Number: US-JNJFOC-20150709455

PATIENT
  Age: 59 Year
  Sex: Female
  Weight: 104.31 kg

DRUGS (10)
  1. ADEMPAS [Suspect]
     Active Substance: RIOCIGUAT
     Indication: PULMONARY ARTERIAL HYPERTENSION
     Route: 048
     Dates: start: 20140923
  2. ADEMPAS [Suspect]
     Active Substance: RIOCIGUAT
     Indication: PULMONARY ARTERIAL HYPERTENSION
     Route: 048
  3. LASIX [Suspect]
     Active Substance: FUROSEMIDE
     Indication: PRODUCT USED FOR UNKNOWN INDICATION
     Route: 065
  4. ADEMPAS [Suspect]
     Active Substance: RIOCIGUAT
     Indication: PULMONARY ARTERIAL HYPERTENSION
     Route: 048
     Dates: start: 20141204
  5. ADEMPAS [Suspect]
     Active Substance: RIOCIGUAT
     Indication: PULMONARY ARTERIAL HYPERTENSION
     Route: 048
  6. LASIX [Suspect]
     Active Substance: FUROSEMIDE
     Indication: PRODUCT USED FOR UNKNOWN INDICATION
     Dosage: QAM (EVERY MORNING)
     Route: 065
  7. LETAIRIS [Concomitant]
     Active Substance: AMBRISENTAN
     Route: 065
  8. XARELTO [Suspect]
     Active Substance: RIVAROXABAN
     Indication: PRODUCT USED FOR UNKNOWN INDICATION
     Route: 048
     Dates: end: 201511
  9. ADEMPAS [Suspect]
     Active Substance: RIOCIGUAT
     Indication: PULMONARY ARTERIAL HYPERTENSION
     Route: 048
  10. ADEMPAS [Suspect]
     Active Substance: RIOCIGUAT
     Indication: PULMONARY ARTERIAL HYPERTENSION
     Route: 048

REACTIONS (24)
  - Rectal haemorrhage [Unknown]
  - Rales [Unknown]
  - Tinnitus [Not Recovered/Not Resolved]
  - Vision blurred [Recovered/Resolved]
  - Oedema [Unknown]
  - Fatigue [Unknown]
  - Hemianaesthesia [Unknown]
  - Swelling [Unknown]
  - Treatment noncompliance [Unknown]
  - Cough [Unknown]
  - Peripheral swelling [Unknown]
  - Chest pain [Unknown]
  - Haemorrhoidal haemorrhage [Unknown]
  - Orthopnoea [Unknown]
  - Sinusitis [Recovered/Resolved]
  - Blood count abnormal [Unknown]
  - Anaemia [Recovering/Resolving]
  - Paranasal sinus hypersecretion [Unknown]
  - Weight increased [Unknown]
  - Diplopia [Recovered/Resolved]
  - Dyspnoea exertional [Unknown]
  - Haemorrhoids [Unknown]
  - Oxygen saturation decreased [Unknown]
  - Dyspnoea [Unknown]

NARRATIVE: CASE EVENT DATE: 20150621
